FAERS Safety Report 8184844 (Version 2)
Quarter: 2012Q4

REPORT INFORMATION
  Report Type: 
  Country: US (occurrence: US)
  Receive Date: 20111018
  Receipt Date: 20121003
  Transmission Date: 20130627
  Serious: Yes (Hospitalization)
  Sender: FDA-Public Use
  Company Number: US-US-EMD SERONO, INC.-7088672

PATIENT
  Age: 45 None
  Sex: Female

DRUGS (3)
  1. REBIF [Suspect]
     Indication: MULTIPLE SCLEROSIS
     Route: 058
     Dates: start: 20020923, end: 201105
  2. REBIF [Suspect]
     Route: 058
     Dates: start: 201110
  3. NAPROXEN [Concomitant]
     Indication: PREMEDICATION

REACTIONS (5)
  - Endometrial hyperplasia [Recovered/Resolved]
  - Skin tightness [Unknown]
  - Headache [Unknown]
  - Injection site erythema [Unknown]
  - Injection site mass [Unknown]
